FAERS Safety Report 4641587-3 (Version None)
Quarter: 2005Q2

REPORT INFORMATION
  Report Type: 
  Country: None (occurrence: None)
  Receive Date: 20050420
  Receipt Date: 20050406
  Transmission Date: 20051028
  Serious: Yes (Other)
  Sender: FDA-Public Use
  Company Number: US_0504115078

PATIENT
  Age: 72 Year

DRUGS (2)
  1. GEMCITABINE HYDROCHLORIDE-IV (GEMCITABINE) [Suspect]
     Indication: RENAL CELL CARCINOMA STAGE UNSPECIFIED
     Dosage: 800 MG/M2, OTHER
     Route: 050
  2. INTERFERON ALFA-2A [Concomitant]

REACTIONS (1)
  - CEREBROVASCULAR ACCIDENT [None]
